FAERS Safety Report 17387239 (Version 1)
Quarter: 2020Q1

REPORT INFORMATION
  Report Type: Spontaneous
  Country: US (occurrence: US)
  Receive Date: 20200123
  Receipt Date: 20200123
  Transmission Date: 20200409
  Serious: No
  Sender: FDA-Public Use
  Company Number: None

PATIENT
  Age: 40 Year
  Sex: Female

DRUGS (1)
  1. GLATIRAMER 40MG PFS INJ (12/BOX) [Suspect]
     Active Substance: GLATIRAMER
     Route: 058
     Dates: start: 201910

REACTIONS (6)
  - Injection related reaction [None]
  - Skin mass [None]
  - Nausea [None]
  - Flushing [None]
  - Tachypnoea [None]
  - Heart rate increased [None]

NARRATIVE: CASE EVENT DATE: 20200123
